FAERS Safety Report 14194279 (Version 1)
Quarter: 2017Q4

REPORT INFORMATION
  Report Type: Spontaneous
  Country: US (occurrence: US)
  Receive Date: 20171115
  Receipt Date: 20171115
  Transmission Date: 20180321
  Serious: No
  Sender: FDA-Public Use
  Company Number: None

PATIENT
  Age: 29 Year
  Sex: Female
  Weight: 148.5 kg

DRUGS (4)
  1. IBUPROFEN. [Concomitant]
     Active Substance: IBUPROFEN
  2. DIFLUCAN [Suspect]
     Active Substance: FLUCONAZOLE
     Indication: FUNGAL INFECTION
     Dosage: QUANTITY:1 TABLET(S);OTHER FREQUENCY:ONE DOSE;?
     Route: 048
     Dates: start: 20171008, end: 20171104
  3. CEPHALEXIN. [Concomitant]
     Active Substance: CEPHALEXIN
  4. LIDOCAINE. [Concomitant]
     Active Substance: LIDOCAINE

REACTIONS (5)
  - Blister [None]
  - Swelling [None]
  - Herpes zoster [None]
  - Pruritus [None]
  - Oral mucosal blistering [None]

NARRATIVE: CASE EVENT DATE: 20171104
